FAERS Safety Report 17749775 (Version 5)
Quarter: 2025Q4

REPORT INFORMATION
  Report Type: Spontaneous
  Country: EU (occurrence: EU)
  Receive Date: 20200506
  Receipt Date: 20251028
  Transmission Date: 20260118
  Serious: Yes (Other)
  Sender: NOVARTIS
  Company Number: EU-NOVARTISPH-NVSC2020CZ061904

PATIENT
  Age: 66 Year
  Sex: Female

DRUGS (21)
  1. PACLITAXEL [Suspect]
     Active Substance: PACLITAXEL
     Indication: Breast cancer metastatic
     Dosage: UNK
     Route: 042
  2. PACLITAXEL [Suspect]
     Active Substance: PACLITAXEL
     Indication: Breast cancer
     Dosage: UNK, (FIRST CYCLE)
     Route: 042
     Dates: start: 20130911
  3. PACLITAXEL [Suspect]
     Active Substance: PACLITAXEL
     Dosage: UNK, (SECOND CYCLE)
     Route: 042
     Dates: start: 20131003
  4. LETROZOLE [Suspect]
     Active Substance: LETROZOLE
     Indication: Breast cancer
     Dosage: UNK
     Route: 048
     Dates: start: 20131203
  5. LETROZOLE [Suspect]
     Active Substance: LETROZOLE
     Indication: Breast cancer metastatic
     Dosage: UNK
     Route: 048
     Dates: start: 2019
  6. LETROZOLE [Suspect]
     Active Substance: LETROZOLE
     Dosage: UNK
     Route: 048
  7. DOXORUBICIN HYDROCHLORIDE [Suspect]
     Active Substance: DOXORUBICIN HYDROCHLORIDE
     Indication: Breast cancer
     Dosage: NEOADJUVANT CHEMOTHERAPY - 6 CYCLES, SOLUTION FOR INJECTION/INFUSION
     Route: 042
  8. DOCETAXEL [Suspect]
     Active Substance: DOCETAXEL
     Indication: Breast cancer
     Dosage: 2 CYCLES
     Route: 042
  9. VINORELBINE [Suspect]
     Active Substance: VINORELBINE TARTRATE
     Indication: Breast cancer
     Dosage: UNK
     Route: 065
  10. LAPATINIB [Suspect]
     Active Substance: LAPATINIB
     Indication: Breast cancer metastatic
     Dosage: UNK
     Route: 065
     Dates: start: 20140203
  11. LAPATINIB [Suspect]
     Active Substance: LAPATINIB
     Indication: Chemotherapy
  12. LAPATINIB [Suspect]
     Active Substance: LAPATINIB
     Indication: Breast cancer
  13. CYCLOPHOSPHAMIDE [Suspect]
     Active Substance: CYCLOPHOSPHAMIDE
     Indication: Breast cancer
     Dosage: UNK
     Route: 065
  14. TRASTUZUMAB [Suspect]
     Active Substance: TRASTUZUMAB
     Indication: Breast cancer metastatic
     Dosage: UNK
     Route: 042
  15. TRASTUZUMAB [Suspect]
     Active Substance: TRASTUZUMAB
     Indication: Breast cancer
     Dosage: UNK, (FIRST CYCLE)
     Route: 042
     Dates: start: 20130911
  16. TRASTUZUMAB [Suspect]
     Active Substance: TRASTUZUMAB
     Dosage: UNK, (SECOND CYCLE)
     Route: 042
     Dates: start: 20131003
  17. CAPECITABINE [Suspect]
     Active Substance: CAPECITABINE
     Indication: Chemotherapy
     Dosage: UNK
     Route: 048
     Dates: start: 20131219
  18. CAPECITABINE [Suspect]
     Active Substance: CAPECITABINE
     Indication: Breast cancer
  19. EXEMESTANE [Suspect]
     Active Substance: EXEMESTANE
     Indication: Hormone therapy
     Dosage: UNK
     Route: 048
     Dates: start: 20131203
  20. EXEMESTANE [Suspect]
     Active Substance: EXEMESTANE
     Indication: Breast cancer
     Dosage: UNK
     Route: 065
     Dates: start: 2019
  21. TAMOXIFEN [Concomitant]
     Active Substance: TAMOXIFEN
     Indication: Breast cancer
     Dosage: UNK
     Route: 065

REACTIONS (9)
  - Erysipelas [Unknown]
  - Subclavian vein thrombosis [Unknown]
  - Malignant neoplasm progression [Unknown]
  - Disease progression [Unknown]
  - Hypersensitivity [Unknown]
  - Neuropathy peripheral [Not Recovered/Not Resolved]
  - Breast cancer metastatic [Recovering/Resolving]
  - Haematotoxicity [Unknown]
  - Adverse drug reaction [Unknown]
